FAERS Safety Report 7509121-8 (Version None)
Quarter: 2011Q2

REPORT INFORMATION
  Report Type: 
  Country: None (occurrence: None)
  Receive Date: 20110527
  Receipt Date: 20110516
  Transmission Date: 20111010
  Serious: Yes (Hospitalization)
  Sender: FDA-Public Use
  Company Number: US-JNJFOC-20110508372

PATIENT
  Sex: Female

DRUGS (1)
  1. FLOXIN [Suspect]
     Indication: PRODUCT USED FOR UNKNOWN INDICATION
     Route: 042

REACTIONS (4)
  - INFUSION SITE SWELLING [None]
  - HOSPITALISATION [None]
  - PRURITUS [None]
  - FEELING COLD [None]
